FAERS Safety Report 5047156-8 (Version None)
Quarter: 2006Q3

REPORT INFORMATION
  Report Type: 
  Country: None (occurrence: None)
  Receive Date: 20060703
  Receipt Date: 20060620
  Transmission Date: 20061208
  Serious: Yes (Life-Threatening)
  Sender: FDA-Public Use
  Company Number: 2006P1000329

PATIENT
  Age: 78 Year
  Sex: Male
  Weight: 78 kg

DRUGS (8)
  1. RETEPLASE (RETEPLASE) [Suspect]
     Indication: ACUTE MYOCARDIAL INFARCTION
     Dosage: IV
     Route: 042
  2. REOPRO [Suspect]
     Indication: ACUTE MYOCARDIAL INFARCTION
     Dosage: IV
     Route: 042
     Dates: start: 20060104
  3. ASPIRIN [Concomitant]
  4. FUROSEMIDE [Concomitant]
  5. BISOPROLOL FUMARATE [Concomitant]
  6. CLOPIDOGREL [Concomitant]
  7. ATORVASTATIN CALCIUM [Concomitant]
  8. LANSOPRAZOLE [Concomitant]

REACTIONS (4)
  - ARTERIAL INJURY [None]
  - CORONARY ARTERY OCCLUSION [None]
  - HAEMOGLOBIN DECREASED [None]
  - PERICARDIAL HAEMORRHAGE [None]
